FAERS Safety Report 13687395 (Version 1)
Quarter: 2017Q2

REPORT INFORMATION
  Report Type: Spontaneous
  Country: GB (occurrence: GB)
  Receive Date: 20170624
  Receipt Date: 20170624
  Transmission Date: 20170830
  Serious: Yes (Death, Other)
  Sender: FDA-Public Use
  Company Number: GB-TORRENT-00015359

PATIENT
  Age: 27 Year
  Sex: Male

DRUGS (3)
  1. PROCYCLIDINE [Concomitant]
     Active Substance: PROCYCLIDINE
  2. ARIPIPRAZOLE. [Suspect]
     Active Substance: ARIPIPRAZOLE
  3. MIRTAZAPINE. [Concomitant]
     Active Substance: MIRTAZAPINE

REACTIONS (3)
  - Pyelonephritis acute [Fatal]
  - Sudden death [Fatal]
  - Pulmonary embolism [Fatal]
